FAERS Safety Report 19918356 (Version 1)
Quarter: 2021Q4

REPORT INFORMATION
  Report Type: Spontaneous
  Country: US (occurrence: US)
  Receive Date: 20211004
  Receipt Date: 20211004
  Transmission Date: 20220303
  Serious: No
  Sender: FDA-Public Use
  Company Number: US-PFIZER INC-2021855462

PATIENT
  Age: 52 Year
  Sex: Female

DRUGS (1)
  1. PEGVISOMANT [Suspect]
     Active Substance: PEGVISOMANT
     Indication: Insulin-like growth factor abnormal
     Dosage: 30 MG ONCE WEEKLY

REACTIONS (3)
  - Mass [Unknown]
  - Injection site reaction [Unknown]
  - Off label use [Unknown]
